FAERS Safety Report 6839534-9 (Version None)
Quarter: 2010Q3

REPORT INFORMATION
  Report Type: 
  Country: None (occurrence: None)
  Receive Date: 20100714
  Receipt Date: 20091214
  Transmission Date: 20110219
  Serious: No
  Sender: FDA-Public Use
  Company Number: A0834972A

PATIENT
  Age: 71 Year
  Sex: Female

DRUGS (2)
  1. FLOVENT [Suspect]
     Indication: CHRONIC OBSTRUCTIVE PULMONARY DISEASE
     Dosage: 2PUFF PER DAY
     Route: 055
     Dates: start: 20091110
  2. SPIRIVA [Concomitant]

REACTIONS (3)
  - DRUG INEFFECTIVE [None]
  - GLOSSODYNIA [None]
  - LUNG DISORDER [None]
